FAERS Safety Report 18283318 (Version 1)
Quarter: 2020Q3

REPORT INFORMATION
  Report Type: Report from Study
  Country: IE (occurrence: IE)
  Receive Date: 20200918
  Receipt Date: 20200918
  Transmission Date: 20201103
  Serious: Yes (Other)
  Sender: FDA-Public Use
  Company Number: IE-MYLANLABS-2020M1079353

PATIENT
  Sex: Female

DRUGS (1)
  1. HULIO [Suspect]
     Active Substance: ADALIMUMAB-FKJP
     Indication: ANKYLOSING SPONDYLITIS
     Dosage: 40 MILLIGRAM/ ONCE EVERY TWO WEEKS
     Dates: start: 20200804, end: 20200909

REACTIONS (8)
  - Insomnia [Unknown]
  - Eye pain [Unknown]
  - Tinnitus [Unknown]
  - Dizziness [Unknown]
  - Dry mouth [Unknown]
  - Dyspnoea [Unknown]
  - Anxiety [Unknown]
  - Paranoia [Unknown]
